FAERS Safety Report 16525861 (Version 4)
Quarter: 2019Q3

REPORT INFORMATION
  Report Type: Spontaneous
  Country: US (occurrence: US)
  Receive Date: 20190703
  Receipt Date: 20190730
  Transmission Date: 20191004
  Serious: Yes (Hospitalization)
  Sender: FDA-Public Use
  Company Number: US-CELGENEUS-USA-20190609969

PATIENT
  Age: 57 Year
  Sex: Female

DRUGS (12)
  1. BUSPIRONE [Concomitant]
     Active Substance: BUSPIRONE HYDROCHLORIDE
     Indication: PRODUCT USED FOR UNKNOWN INDICATION
     Route: 048
  2. OTEZLA [Suspect]
     Active Substance: APREMILAST
     Indication: PSORIASIS
     Dosage: 60 MILLIGRAM
     Route: 048
     Dates: start: 201902
  3. SELSUN [Concomitant]
     Active Substance: SELENIUM SULFIDE
     Route: 061
     Dates: start: 201902
  4. BUSPIRONE [Concomitant]
     Active Substance: BUSPIRONE HYDROCHLORIDE
     Route: 061
     Dates: start: 201902
  5. CLONAZEPAM. [Concomitant]
     Active Substance: CLONAZEPAM
     Route: 061
     Dates: start: 201902
  6. BRYHALI [Concomitant]
     Active Substance: HALOBETASOL PROPIONATE
     Route: 061
     Dates: start: 201902
  7. BRYHALI [Concomitant]
     Active Substance: HALOBETASOL PROPIONATE
     Indication: PSORIASIS
     Route: 061
     Dates: start: 201902
  8. CLONAZEPAM. [Concomitant]
     Active Substance: CLONAZEPAM
     Indication: PRODUCT USED FOR UNKNOWN INDICATION
     Route: 048
  9. SELSUN [Concomitant]
     Active Substance: SELENIUM SULFIDE
     Indication: PSORIASIS
     Route: 061
     Dates: start: 201902
  10. KEPPRA [Concomitant]
     Active Substance: LEVETIRACETAM
     Indication: PRODUCT USED FOR UNKNOWN INDICATION
     Route: 048
  11. KEPPRA [Concomitant]
     Active Substance: LEVETIRACETAM
     Route: 061
     Dates: start: 201902
  12. OTEZLA [Suspect]
     Active Substance: APREMILAST
     Dosage: 60 MILLIGRAM
     Route: 048
     Dates: start: 20190501, end: 201905

REACTIONS (2)
  - Guillain-Barre syndrome [Not Recovered/Not Resolved]
  - Lung infection [Recovered/Resolved]

NARRATIVE: CASE EVENT DATE: 20190526
